FAERS Safety Report 6310918-0 (Version None)
Quarter: 2009Q3

REPORT INFORMATION
  Report Type: 
  Country: None (occurrence: None)
  Receive Date: 20090812
  Receipt Date: 20090807
  Transmission Date: 20100115
  Serious: Yes (Hospitalization)
  Sender: FDA-Public Use
  Company Number: TIF2009A00054

PATIENT
  Age: 79 Year
  Sex: Male

DRUGS (8)
  1. LANSOPRAZOLE [Suspect]
     Indication: PROPHYLAXIS AGAINST GASTROINTESTINAL ULCER
     Dosage: 30 MG ORAL
     Route: 048
     Dates: start: 20070101, end: 20090427
  2. SIMVASTATIN [Suspect]
     Indication: HYPERCHOLESTEROLAEMIA
     Dosage: 40 MG (40 MG, 1 IN 1 D) ORAL
     Route: 048
     Dates: start: 20070101, end: 20090427
  3. OLPREZIDE [Suspect]
     Indication: HYPERTENSION
     Dosage: 20 MG ORAL
     Route: 048
     Dates: start: 20070101, end: 20090427
  4. PLAVIX [Concomitant]
  5. XATRAL (ALFUZOSIN) [Concomitant]
  6. MEDROL [Concomitant]
  7. DANAZOL [Concomitant]
  8. XANAX [Concomitant]

REACTIONS (2)
  - RENAL FAILURE ACUTE [None]
  - RHABDOMYOLYSIS [None]
